FAERS Safety Report 7615787-4 (Version None)
Quarter: 2011Q3

REPORT INFORMATION
  Report Type: 
  Country: None (occurrence: None)
  Receive Date: 20110711
  Receipt Date: 20110624
  Transmission Date: 20111222
  Serious: Yes (Hospitalization)
  Sender: FDA-Public Use
  Company Number: 2011MA008021

PATIENT
  Age: 20 Year
  Sex: Male

DRUGS (4)
  1. VANCOMYCIN HCL [Suspect]
     Indication: TENOSYNOVITIS
  2. SEPTRA [Suspect]
     Indication: TENOSYNOVITIS
  3. SULFATRIM PEDIATRIC [Suspect]
     Indication: TENOSYNOVITIS
  4. DOXYCYCLINE [Suspect]
     Indication: TENOSYNOVITIS

REACTIONS (7)
  - MYALGIA [None]
  - RESPIRATORY FAILURE [None]
  - DRUG RASH WITH EOSINOPHILIA AND SYSTEMIC SYMPTOMS [None]
  - RENAL FAILURE [None]
  - SPLENIC INFARCTION [None]
  - SEPTIC SHOCK [None]
  - DISSEMINATED INTRAVASCULAR COAGULATION [None]
